FAERS Safety Report 4538563-8 (Version None)
Quarter: 2004Q4

REPORT INFORMATION
  Report Type: 
  Country: None (occurrence: None)
  Receive Date: 20041222
  Receipt Date: 20041214
  Transmission Date: 20050328
  Serious: Yes (Disabling)
  Sender: FDA-Public Use
  Company Number: HQWYE384907APR04

PATIENT
  Age: 1 Day
  Sex: Female

DRUGS (4)
  1. ALVOCARDYL          (PROPANOLOL HYDROCHLORIDE) [Suspect]
     Indication: BASEDOW'S DISEASE
     Route: 064
  2. ASPIRIN [Suspect]
     Indication: BASEDOW'S DISEASE
     Route: 064
  3. NEO-MERCAZOLE TAB [Suspect]
     Indication: BASEDOW'S DISEASE
     Route: 064
  4. THYROID TAB [Suspect]
     Indication: BASEDOW'S DISEASE
     Route: 064

REACTIONS (7)
  - ANOMALOUS PULMONARY VENOUS CONNECTION [None]
  - AORTA HYPOPLASIA [None]
  - CONGENITAL FOOT MALFORMATION [None]
  - CONGENITAL HAND MALFORMATION [None]
  - DRUG EXPOSURE DURING PREGNANCY [None]
  - FOETAL GROWTH RETARDATION [None]
  - RADIOULNAR SYNOSTOSIS [None]
